FAERS Safety Report 17939851 (Version 4)
Quarter: 2023Q1

REPORT INFORMATION
  Report Type: Other
  Country: ZA (occurrence: None)
  Receive Date: 20200625
  Receipt Date: 20230206
  Transmission Date: 20230418
  Serious: Yes (Other)
  Sender: FDA-Public Use
  Company Number: ZA-ROCHE-2620358

PATIENT
  Age: 51 Year
  Sex: Female

DRUGS (8)
  1. MABTHERA [Suspect]
     Active Substance: RITUXIMAB
     Indication: Rheumatoid arthritis
     Route: 041
     Dates: start: 200907
  2. MABTHERA [Suspect]
     Active Substance: RITUXIMAB
     Indication: Systemic lupus erythematosus
     Dosage: INFUSED ON DAY 1 AND DAY 15
     Route: 041
     Dates: start: 20200115
  3. MABTHERA [Suspect]
     Active Substance: RITUXIMAB
     Route: 041
     Dates: start: 201208
  4. MABTHERA [Suspect]
     Active Substance: RITUXIMAB
     Route: 041
     Dates: start: 201201
  5. MABTHERA [Suspect]
     Active Substance: RITUXIMAB
     Route: 041
  6. METHOTREXATE [Concomitant]
     Active Substance: METHOTREXATE
     Route: 058
     Dates: start: 2007, end: 2013
  7. CHLOROQUINE [Concomitant]
     Active Substance: CHLOROQUINE
     Dates: start: 2007
  8. ARAVA [Concomitant]
     Active Substance: LEFLUNOMIDE
     Dates: start: 2008

REACTIONS (7)
  - Cervix carcinoma [Unknown]
  - C-reactive protein increased [Unknown]
  - Haemoglobin increased [Unknown]
  - Condition aggravated [Unknown]
  - Chronic sinusitis [Unknown]
  - Rheumatoid arthritis [Unknown]
  - Treatment noncompliance [Unknown]

NARRATIVE: CASE EVENT DATE: 20110101
